FAERS Safety Report 6655318-9 (Version None)
Quarter: 2010Q1

REPORT INFORMATION
  Report Type: 
  Country: None (occurrence: None)
  Receive Date: 20100329
  Receipt Date: 20100317
  Transmission Date: 20100710
  Serious: Yes (Other)
  Sender: FDA-Public Use
  Company Number: US-PFIZER INC-2010034622

PATIENT
  Sex: Female
  Weight: 52.2 kg

DRUGS (15)
  1. SUTENT [Suspect]
     Indication: RENAL CANCER
     Dosage: 50 MG, 1X/DAY
     Route: 048
     Dates: start: 20100310
  2. SINEMET [Concomitant]
     Dosage: UNK
  3. PANCRELIPASE [Concomitant]
     Indication: PANCREATECTOMY
     Dosage: UNK
  4. THERMOTABS [Concomitant]
     Indication: BLOOD PRESSURE MANAGEMENT
     Dosage: UNK
  5. FLORINEF [Concomitant]
     Indication: BLOOD PRESSURE MANAGEMENT
     Dosage: UNK
  6. OMEPRAZOLE [Concomitant]
     Indication: ANTACID THERAPY
     Dosage: UNK
  7. LISINOPRIL [Concomitant]
     Indication: BLOOD PRESSURE MANAGEMENT
     Dosage: UNK
  8. DARIFENACIN HYDROBROMIDE [Concomitant]
     Indication: URINARY INCONTINENCE
     Dosage: UNK
  9. LANTUS [Concomitant]
     Indication: DIABETES MELLITUS
     Dosage: UNK
  10. INSULIN GLULISINE [Concomitant]
     Indication: DIABETES MELLITUS
     Dosage: UNK
  11. REQUIP [Concomitant]
     Indication: PARKINSON'S DISEASE
     Dosage: UNK
  12. IBANDRONATE SODIUM [Concomitant]
     Dosage: UNK
  13. VITAMIN D [Concomitant]
     Indication: SUPPLEMENTATION THERAPY
     Dosage: UNK
  14. MULTI-VITAMINS [Concomitant]
     Indication: SUPPLEMENTATION THERAPY
     Dosage: UNK
  15. MAGNESIUM [Concomitant]
     Indication: SUPPLEMENTATION THERAPY
     Dosage: UNK

REACTIONS (1)
  - HYPOTENSION [None]
